FAERS Safety Report 8249103-4 (Version None)
Quarter: 2012Q2

REPORT INFORMATION
  Report Type: 
  Country: None (occurrence: None)
  Receive Date: 20120402
  Receipt Date: 20120326
  Transmission Date: 20120825
  Serious: No
  Sender: FDA-Public Use
  Company Number: US-PFIZER INC-2012054077

PATIENT
  Sex: Female
  Weight: 81.633 kg

DRUGS (23)
  1. MACROBID [Concomitant]
     Dosage: 100 MG, 2X/DAY
  2. PROZAC [Concomitant]
     Dosage: 40 MG, 2X/DAY
  3. LORCET-HD [Concomitant]
     Dosage: 10 MG/650MG EVERY 4-6 HOURS AS NEEDED
  4. METFORMIN [Concomitant]
     Dosage: 500 MG, 3X/DAY
  5. SINGULAIR [Concomitant]
     Dosage: 5 MG, UNK
  6. PHENERGAN HCL [Concomitant]
     Dosage: 25 MG, ONCE EVERY 4-6 HOURS AS NEEDED
  7. LYRICA [Suspect]
     Indication: MIGRAINE
  8. PRAVASTATIN [Concomitant]
     Dosage: 400 MG, 1X/DAY
     Route: 048
  9. LOMOTIL [Concomitant]
     Dosage: 2.5 MG, 1-2 TABS EVERY 4-6 HOURS AS NEEDED
  10. LYRICA [Suspect]
     Indication: FIBROMYALGIA
     Dosage: 100 MG, 3X/DAY
     Route: 048
  11. GLUCOTROL XL [Concomitant]
     Dosage: 10 MG, 1X/DAY PRN
  12. TOPAMAX [Concomitant]
     Dosage: 200 MG, 1X/DAY
  13. ADIPEX-P [Concomitant]
     Dosage: 37.5 MG, 1X/DAY
  14. ACYCLOVIR [Concomitant]
     Dosage: 400 MG THREE TIMES DAILY AS NEEDED
  15. METOPROLOL TARTRATE [Concomitant]
     Dosage: UNK, 2X/DAY
  16. WELLBUTRIN XL [Concomitant]
     Dosage: 150 MG, 1X/DAY
  17. CLONAZEPAM [Concomitant]
     Dosage: 1 MG EVERY 6 HOURS AS NEEDED
  18. PHENAZOPYRIDINE HCL TAB [Concomitant]
     Dosage: 200 MG 3 TIMES DAILY AS NEEDED
  19. ASPIRIN [Concomitant]
     Dosage: 81 MG, 1X/DAY
  20. LASIX [Concomitant]
     Dosage: 20 MG, 1X/DAY
  21. LISINOPRIL [Concomitant]
     Dosage: 20 MG, 1X/DAY
  22. ATARAX [Concomitant]
     Dosage: 25 MG EVERY 6 HOURS AS NEEDED
  23. SOMA [Concomitant]
     Dosage: 350 MG EVERY 6 HOURS AS NEEDED

REACTIONS (7)
  - MUSCULOSKELETAL PAIN [None]
  - DRUG INEFFECTIVE [None]
  - NECK PAIN [None]
  - PAIN [None]
  - FEELING ABNORMAL [None]
  - DECREASED INTEREST [None]
  - INSOMNIA [None]
